FAERS Safety Report 9547742 (Version 2)
Quarter: 2013Q3

REPORT INFORMATION
  Report Type: Spontaneous
  Country: JP (occurrence: JP)
  Receive Date: 20130924
  Receipt Date: 20130924
  Transmission Date: 20140515
  Serious: Yes (Other)
  Sender: FDA-Public Use
  Company Number: JP-ASTELLAS-2013JP009146

PATIENT
  Sex: Female
  Weight: 29.5 kg

DRUGS (7)
  1. PROGRAF [Suspect]
     Indication: JUVENILE IDIOPATHIC ARTHRITIS
     Dosage: UNK
     Route: 048
  2. ASTRIC [Suspect]
     Route: 048
  3. SELBEX [Suspect]
     Route: 048
  4. METHOTREXATE [Concomitant]
     Dosage: 2.5 MG, BID
     Route: 048
  5. BAKTAR [Concomitant]
     Route: 048
  6. PREDNISOLONE [Concomitant]
     Route: 048
  7. ALLEGRA [Concomitant]
     Indication: PROPHYLAXIS
     Route: 048

REACTIONS (2)
  - Off label use [Unknown]
  - Urticaria chronic [Not Recovered/Not Resolved]
